FAERS Safety Report 9639063 (Version 1)
Quarter: 2013Q4

REPORT INFORMATION
  Report Type: Spontaneous
  Country: GB (occurrence: GB)
  Receive Date: 20131022
  Receipt Date: 20131022
  Transmission Date: 20140711
  Serious: Yes (Hospitalization)
  Sender: FDA-Public Use
  Company Number: GB-MALLINCKRODT-T201103056

PATIENT
  Age: 64 Year
  Sex: Male

DRUGS (2)
  1. PENNSAID [Suspect]
     Indication: PRODUCT USED FOR UNKNOWN INDICATION
     Dosage: UNK
     Route: 065
  2. SPIRONOLACTONE [Concomitant]
     Indication: PRODUCT USED FOR UNKNOWN INDICATION
     Route: 065

REACTIONS (4)
  - Cardiac failure [Unknown]
  - Dyspnoea exertional [Unknown]
  - Orthopnoea [Unknown]
  - Dyspnoea paroxysmal nocturnal [Unknown]
